FAERS Safety Report 14273860 (Version 1)
Quarter: 2017Q4

REPORT INFORMATION
  Report Type: Spontaneous
  Country: US (occurrence: US)
  Receive Date: 20171212
  Receipt Date: 20171212
  Transmission Date: 20180321
  Serious: No
  Sender: FDA-Public Use
  Company Number: US-JNJFOC-20171133335

PATIENT
  Age: 61 Year
  Sex: Female

DRUGS (6)
  1. VIT B 12 [Concomitant]
     Indication: ALOPECIA
     Route: 065
  2. SPIRONOLACTONE. [Concomitant]
     Active Substance: SPIRONOLACTONE
     Indication: ALOPECIA
     Route: 065
  3. WOMENS ROGAINE UNSCENTED [Suspect]
     Active Substance: MINOXIDIL
     Route: 061
  4. BIOTIN [Concomitant]
     Active Substance: BIOTIN
     Indication: ALOPECIA
     Route: 065
  5. WOMENS ROGAINE UNSCENTED [Suspect]
     Active Substance: MINOXIDIL
     Indication: ALOPECIA
     Route: 061
  6. FISH OIL [Concomitant]
     Active Substance: FISH OIL
     Indication: ALOPECIA
     Route: 065

REACTIONS (2)
  - Trichorrhexis [Unknown]
  - Product use in unapproved indication [Unknown]
